FAERS Safety Report 5273440-9 (Version None)
Quarter: 2007Q1

REPORT INFORMATION
  Report Type: 
  Country: None (occurrence: None)
  Receive Date: 20061219
  Receipt Date: 20060905
  Transmission Date: 20070707
  Serious: Yes (Other)
  Sender: FDA-Public Use
  Company Number: US-JNJFOC-20060800301

PATIENT
  Age: 33 Year
  Sex: Female
  Weight: 124.7392 kg

DRUGS (1)
  1. ORTHO EVRA [Suspect]
     Indication: MENORRHAGIA
     Dosage: 1 DOSE(S), 3 IN 4 WEEK, TRANSDERMAL
     Route: 062
     Dates: start: 20060220, end: 20060601

REACTIONS (1)
  - DEEP VEIN THROMBOSIS [None]
